FAERS Safety Report 9765575 (Version 1)
Quarter: 2013Q4

REPORT INFORMATION
  Report Type: Spontaneous
  Country: US (occurrence: None)
  Receive Date: 20131216
  Receipt Date: 20131216
  Transmission Date: 20140711
  Serious: Yes (Disabling, Other)
  Sender: FDA-Public Use
  Company Number: None

PATIENT
  Age: 59 Year
  Sex: Female
  Weight: 81.65 kg

DRUGS (1)
  1. VESICARE [Suspect]
     Indication: BLADDER DISORDER
     Dosage: 1 TIME A DAY ONCE DAILY TAKEN BY MOUTH
     Route: 048
     Dates: start: 20130801, end: 20130930

REACTIONS (4)
  - Headache [None]
  - Abdominal pain upper [None]
  - Amnesia [None]
  - Asthma [None]
